FAERS Safety Report 6843385-9 (Version None)
Quarter: 2010Q3

REPORT INFORMATION
  Report Type: 
  Country: None (occurrence: None)
  Receive Date: 20100715
  Receipt Date: 20100713
  Transmission Date: 20110219
  Serious: Yes (Other)
  Sender: FDA-Public Use
  Company Number: US-ASTRAZENECA-2006UW07927

PATIENT
  Age: 17470 Day
  Sex: Male
  Weight: 104.3 kg

DRUGS (13)
  1. SEROQUEL [Suspect]
     Indication: BIPOLAR DISORDER
     Dosage: 50 MG -600 MG, 25 MG
     Route: 048
     Dates: start: 19990423
  2. SEROQUEL [Suspect]
     Indication: SCHIZOPHRENIA
     Dosage: 50 MG -600 MG, 25 MG
     Route: 048
     Dates: start: 19990423
  3. SEROQUEL [Suspect]
     Indication: DEPRESSION
     Dosage: 50 MG -600 MG, 25 MG
     Route: 048
     Dates: start: 19990423
  4. LEXAPRO [Concomitant]
     Route: 048
     Dates: start: 20061001
  5. ABILIFY [Concomitant]
     Route: 048
     Dates: start: 20021201
  6. ABILIFY [Concomitant]
     Dosage: 15MG-30MG
     Dates: start: 20021227
  7. RISPERDAL [Concomitant]
     Dates: start: 19980306, end: 19980813
  8. ZYPREXA [Concomitant]
     Dates: start: 20000111, end: 20010322
  9. ZYPREXA [Concomitant]
     Dosage: 10MG-15MG
     Dates: start: 20000414
  10. DEPAKOTE [Concomitant]
     Dates: start: 20000414
  11. PAXIL [Concomitant]
     Dates: start: 20001221
  12. VISTARIL [Concomitant]
     Dates: start: 20001221
  13. REMERON [Concomitant]
     Dates: start: 20000414

REACTIONS (5)
  - DIABETES MELLITUS [None]
  - DIABETES MELLITUS INADEQUATE CONTROL [None]
  - DIABETIC COMA [None]
  - DIABETIC RETINOPATHY [None]
  - TYPE 1 DIABETES MELLITUS [None]
